FAERS Safety Report 23394354 (Version 1)
Quarter: 2024Q1

REPORT INFORMATION
  Report Type: Report from Study
  Country: US (occurrence: US)
  Receive Date: 20240111
  Receipt Date: 20240111
  Transmission Date: 20240409
  Serious: Yes (Other)
  Sender: FDA-Public Use
  Company Number: US-ABBVIE-4331937

PATIENT
  Age: 60 Year
  Sex: Male

DRUGS (1)
  1. HUMIRA [Suspect]
     Active Substance: ADALIMUMAB
     Indication: Crohn^s disease
     Dosage: CITRATE FREE; FORM STRENGTH: 40MG
     Route: 058
     Dates: start: 20220401

REACTIONS (6)
  - Pulmonary embolism [Recovered/Resolved]
  - Pneumonia [Recovered/Resolved]
  - Respiratory disorder [Recovering/Resolving]
  - Pulmonary artery aneurysm [Unknown]
  - Cough [Recovering/Resolving]
  - Exposure to unspecified agent [Recovering/Resolving]

NARRATIVE: CASE EVENT DATE: 20221224
